FAERS Safety Report 12968542 (Version 1)
Quarter: 2016Q4

REPORT INFORMATION
  Report Type: Spontaneous
  Country: US (occurrence: US)
  Receive Date: 20161120
  Receipt Date: 20161120
  Transmission Date: 20170207
  Serious: Yes (Hospitalization)
  Sender: FDA-Public Use
  Company Number: None

PATIENT
  Age: 68 Year
  Sex: Female

DRUGS (2)
  1. METHOTREXATE. [Suspect]
     Active Substance: METHOTREXATE
     Indication: MALAISE
     Dosage: INJECT (0.8ML) (20MG) ONCE WEEKLY UNKNOWN
     Dates: start: 20151208, end: 20160908
  2. METHOTREXATE. [Suspect]
     Active Substance: METHOTREXATE
     Indication: RHEUMATOID ARTHRITIS
     Dosage: INJECT (0.8ML) (20MG) ONCE WEEKLY UNKNOWN
     Dates: start: 20151208, end: 20160908

REACTIONS (2)
  - Drug ineffective [None]
  - Blood count abnormal [None]

NARRATIVE: CASE EVENT DATE: 20160917
